FAERS Safety Report 7227377-6 (Version None)
Quarter: 2011Q1

REPORT INFORMATION
  Report Type: 
  Country: None (occurrence: None)
  Receive Date: 20110105
  Receipt Date: 20101229
  Transmission Date: 20110831
  Serious: Yes (Congenital Anomaly)
  Sender: FDA-Public Use
  Company Number: 2010SP034898

PATIENT

DRUGS (1)
  1. IMPLANON [Suspect]
     Indication: MATERNAL DRUGS AFFECTING FOETUS
     Dosage: 1 DF; TRPL
     Route: 064

REACTIONS (3)
  - FALLOT'S TETRALOGY [None]
  - MATERNAL DRUGS AFFECTING FOETUS [None]
  - FOETAL CARDIAC DISORDER [None]
